FAERS Safety Report 6998715-4 (Version None)
Quarter: 2010Q3

REPORT INFORMATION
  Report Type: 
  Country: None (occurrence: None)
  Receive Date: 20100920
  Receipt Date: 20100412
  Transmission Date: 20110219
  Serious: No
  Sender: FDA-Public Use
  Company Number: US-ASTRAZENECA-2010SE16011

PATIENT
  Sex: Female
  Weight: 83 kg

DRUGS (12)
  1. SEROQUEL XR [Suspect]
     Indication: BIPOLAR DISORDER
     Route: 048
     Dates: start: 20000101
  2. SEROQUEL XR [Suspect]
     Indication: HALLUCINATION, AUDITORY
     Route: 048
     Dates: start: 20000101
  3. SEROQUEL XR [Suspect]
     Route: 048
     Dates: start: 20100101
  4. SEROQUEL XR [Suspect]
     Route: 048
     Dates: start: 20100101
  5. DILANTIN [Concomitant]
     Indication: CONVULSION
  6. PHENOBARBITAL [Concomitant]
     Indication: CONVULSION
  7. GLYBURIDE [Concomitant]
     Indication: DIABETES MELLITUS
  8. FOLIC ACID [Concomitant]
  9. TOMAZEPAM [Concomitant]
  10. ZOLOFT [Concomitant]
  11. VISTERAL [Concomitant]
     Indication: ANXIETY
  12. LOVASTATIN [Concomitant]
     Indication: BLOOD CHOLESTEROL INCREASED

REACTIONS (5)
  - DRUG DOSE OMISSION [None]
  - HALLUCINATION, AUDITORY [None]
  - INSOMNIA [None]
  - TACHYPHRENIA [None]
  - WRONG TECHNIQUE IN DRUG USAGE PROCESS [None]
